FAERS Safety Report 12078114 (Version 1)
Quarter: 2016Q1

REPORT INFORMATION
  Report Type: Report from Study
  Country: CH (occurrence: CH)
  Receive Date: 20160215
  Receipt Date: 20160215
  Transmission Date: 20160526
  Serious: Yes (Hospitalization)
  Sender: FDA-Public Use
  Company Number: CH-ABBVIE-16P-151-1558291-00

PATIENT
  Sex: Male

DRUGS (1)
  1. DUODOPA [Suspect]
     Active Substance: CARBIDOPA\LEVODOPA
     Indication: PARKINSON^S DISEASE
     Dosage: MD:11ML, CD: 3ML/H, ED: 2ML, LOCK TIME BETWEEN EXTRA DOSES: 2.5H, 16H THERAPY
     Route: 065
     Dates: start: 20150909

REACTIONS (2)
  - Fall [Unknown]
  - Femoral neck fracture [Unknown]
